FAERS Safety Report 7866936-4 (Version None)
Quarter: 2011Q4

REPORT INFORMATION
  Report Type: 
  Country: None (occurrence: None)
  Receive Date: 20111028
  Receipt Date: 20111020
  Transmission Date: 20120403
  Serious: Yes (Death)
  Sender: FDA-Public Use
  Company Number: GB-ROCHE-GNE320989

PATIENT
  Sex: Female

DRUGS (6)
  1. THEOPHYLLINE [Concomitant]
  2. ACETAMINOPHEN AND CODEINE PHOSPHATE [Concomitant]
  3. CO-AMILOFRUSE [Concomitant]
  4. LUCENTIS [Suspect]
     Indication: AGE-RELATED MACULAR DEGENERATION
     Route: 050
     Dates: start: 20090312, end: 20110113
  5. FLUTICASONE PROPIONATE/SALMETEROL [Concomitant]
  6. CELECOXIB [Concomitant]

REACTIONS (1)
  - DEATH [None]
